FAERS Safety Report 10232366 (Version 4)
Quarter: 2014Q4

REPORT INFORMATION
  Report Type: Report from Study
  Country: AU (occurrence: AU)
  Receive Date: 20140612
  Receipt Date: 20141127
  Transmission Date: 20150528
  Serious: Yes (Death, Hospitalization, Other)
  Sender: FDA-Public Use
  Company Number: PHHY2014AU072125

PATIENT
  Age: 66 Year
  Sex: Female

DRUGS (40)
  1. OVESTIN [Concomitant]
     Active Substance: ESTRIOL
     Indication: PRODUCT USED FOR UNKNOWN INDICATION
     Dosage: 1 DF, UNK (1 APPLICATOR TWICE A WEEK)
     Route: 065
  2. REFRESH                            /00880201/ [Concomitant]
     Indication: PRODUCT USED FOR UNKNOWN INDICATION
     Dosage: 0.4 ML, UNK (DAILY INTO THE EYES UPTO 4 HOURLY)
     Route: 047
  3. FLUVAX [Concomitant]
     Active Substance: INFLUENZA VIRUS VACCINE
     Dosage: UNK
     Dates: start: 20100519
  4. MIDAZOLAM [Concomitant]
     Active Substance: MIDAZOLAM\MIDAZOLAM HYDROCHLORIDE
     Indication: PRODUCT USED FOR UNKNOWN INDICATION
     Dosage: 2 MG, UNK
     Route: 065
  5. BETAMIN [Concomitant]
     Indication: PRODUCT USED FOR UNKNOWN INDICATION
     Dosage: 1 DF, PRN
     Route: 065
  6. ELEVA [Concomitant]
     Active Substance: SERTRALINE HYDROCHLORIDE
     Indication: PRODUCT USED FOR UNKNOWN INDICATION
     Dosage: 1 DF, QD
     Route: 065
  7. SOMAC [Concomitant]
     Active Substance: PANTOPRAZOLE SODIUM
     Indication: PRODUCT USED FOR UNKNOWN INDICATION
     Dosage: 1 DF, QD (1 TAB ONCE A DAY)
     Route: 065
  8. METFORMIN [Concomitant]
     Active Substance: METFORMIN HYDROCHLORIDE
     Indication: DIABETES MELLITUS
     Route: 065
  9. FENTANYL. [Concomitant]
     Active Substance: FENTANYL
     Indication: PRODUCT USED FOR UNKNOWN INDICATION
     Dosage: 75 UG, UNK
     Route: 065
  10. CLOZARIL [Suspect]
     Active Substance: CLOZAPINE
     Indication: PRODUCT USED FOR UNKNOWN INDICATION
     Dosage: UNK
     Route: 048
     Dates: end: 2004
  11. CLOZARIL [Suspect]
     Active Substance: CLOZAPINE
     Dosage: 450 MG (100 MGX4 TABLET NOCTE, 25 MGX2 TABLETS NOCTE)
     Route: 048
     Dates: start: 20140528
  12. CALTRATE WITH VITAMIN D [Concomitant]
     Active Substance: CALCIUM CARBONATE\VITAMIN D
     Indication: PRODUCT USED FOR UNKNOWN INDICATION
     Dosage: 1 DF, DAILY
     Route: 065
  13. METAMUCIL ORANGE [Concomitant]
     Indication: PRODUCT USED FOR UNKNOWN INDICATION
     Dosage: 2 DF, PRN (2 TSP DAILY PRN)
     Route: 065
  14. RISPERIDONE. [Concomitant]
     Active Substance: RISPERIDONE
     Indication: PRODUCT USED FOR UNKNOWN INDICATION
     Dosage: 1/2 TO 1 BD PRN
     Route: 048
  15. SPIRIVA [Concomitant]
     Active Substance: TIOTROPIUM BROMIDE MONOHYDRATE
     Indication: PRODUCT USED FOR UNKNOWN INDICATION
     Dosage: 1 DF, QD (1 CAP ONCE A DAY)
     Route: 055
  16. FLUVAX [Concomitant]
     Active Substance: INFLUENZA VIRUS VACCINE
     Dosage: UNK
     Route: 065
     Dates: start: 20090408
  17. DIAMICRON MR [Concomitant]
     Active Substance: GLICLAZIDE
     Indication: PRODUCT USED FOR UNKNOWN INDICATION
     Dosage: 1.5 DF, DAILY
     Route: 065
  18. LASIX M [Concomitant]
     Active Substance: FUROSEMIDE
     Indication: PRODUCT USED FOR UNKNOWN INDICATION
     Dosage: 1 DF, ALTERNATE DAY
     Route: 065
  19. FLUVAX [Concomitant]
     Active Substance: INFLUENZA VIRUS VACCINE
     Dosage: UNK
     Route: 065
     Dates: start: 20080407
  20. BENZTROPINE [Concomitant]
     Active Substance: BENZTROPINE
     Indication: PRODUCT USED FOR UNKNOWN INDICATION
     Route: 065
  21. SERETIDE [Concomitant]
     Active Substance: FLUTICASONE FUROATE\SALMETEROL XINAFOATE
     Indication: PRODUCT USED FOR UNKNOWN INDICATION
     Route: 065
  22. SERETIDE MDI [Concomitant]
     Active Substance: FLUTICASONE PROPIONATE\SALMETEROL XINAFOATE
     Indication: PRODUCT USED FOR UNKNOWN INDICATION
     Dosage: 1 DF, BID (1 PUFF BD)
     Route: 055
  23. VENTOLIN NEBULES PF [Concomitant]
     Indication: PRODUCT USED FOR UNKNOWN INDICATION
     Dosage: 1 DF, BID (1 NEB BD AND INCREASED TO QID PRN)
     Route: 065
  24. INFLUVAC [Concomitant]
     Active Substance: INFLUENZA VIRUS VACCINE
     Indication: PRODUCT USED FOR UNKNOWN INDICATION
     Dosage: UNK
     Route: 065
     Dates: start: 20110524
  25. FLUVAX [Concomitant]
     Active Substance: INFLUENZA VIRUS VACCINE
     Indication: PRODUCT USED FOR UNKNOWN INDICATION
     Dosage: UNK
     Route: 065
     Dates: start: 20060501
  26. CLOZARIL [Suspect]
     Active Substance: CLOZAPINE
     Dosage: 450 MG
     Route: 048
     Dates: start: 20050105
  27. DIAFORMIN [Concomitant]
     Active Substance: METFORMIN HYDROCHLORIDE
     Indication: PRODUCT USED FOR UNKNOWN INDICATION
     Dosage: 1 DF, BID (1 TAB BD)
     Route: 065
  28. NICOTINELL//NICOTINE [Concomitant]
     Indication: PRODUCT USED FOR UNKNOWN INDICATION
     Dosage: 1 DF, QD
     Route: 062
  29. VENTOLIN NEBULES PF [Concomitant]
     Dosage: 1 DF, QID (PRN)
  30. DIAMICRON [Concomitant]
     Active Substance: GLICLAZIDE
     Indication: DIABETES MELLITUS
     Route: 065
  31. BENZTROPINE MESYLATE. [Concomitant]
     Active Substance: BENZTROPINE MESYLATE
     Indication: PRODUCT USED FOR UNKNOWN INDICATION
     Dosage: 0.75 DF (0.5 DF MANE PLUS 0.25 NOCTE)
     Route: 048
  32. KLACID//CLARITHROMYCIN [Concomitant]
     Indication: PRODUCT USED FOR UNKNOWN INDICATION
     Dosage: 1 DF, BID
     Route: 065
  33. RISPERIDONE. [Concomitant]
     Active Substance: RISPERIDONE
     Indication: PRODUCT USED FOR UNKNOWN INDICATION
     Dosage: 1 DF, BIW (INJECTION EVERY FORTNIGHT)
     Route: 065
  34. VALPRO [Concomitant]
     Active Substance: VALPROATE SODIUM
     Indication: PRODUCT USED FOR UNKNOWN INDICATION
     Dosage: 1 DF, NOCTE
     Route: 065
  35. VENTOLIN [Concomitant]
     Active Substance: ALBUTEROL SULFATE
     Indication: PRODUCT USED FOR UNKNOWN INDICATION
     Dosage: 2 DF, QID (2 PUFF QID PRN AND 2 PUFF NOCTE REGULARLY)
     Route: 055
  36. LIPITOR [Concomitant]
     Active Substance: ATORVASTATIN CALCIUM
     Indication: PRODUCT USED FOR UNKNOWN INDICATION
     Dosage: 1 DF, MANE
     Route: 065
  37. MOVICOL [Concomitant]
     Active Substance: POLYETHYLENE GLYCOL 3350\POTASSIUM CHLORIDE\SODIUM BICARBONATE\SODIUM CHLORIDE
     Indication: PRODUCT USED FOR UNKNOWN INDICATION
     Dosage: 1 DF, QD(1 SACHET DAILY)
     Route: 065
  38. PANAMAX [Concomitant]
     Active Substance: ACETAMINOPHEN
     Indication: NASAL DISCOMFORT
     Dosage: 2 DF, TID (2 DF TID PRN)
     Route: 065
  39. VALIUM [Concomitant]
     Active Substance: DIAZEPAM
     Indication: AGITATION
     Dosage: 2 DF, TID  (1 TO 2 TABLETS TDS PRN)
     Route: 065
  40. VALPRO [Concomitant]
     Active Substance: VALPROATE SODIUM
     Dosage: 500 MG, BID
     Route: 065

REACTIONS (46)
  - Emphysema [Fatal]
  - Aspiration [Unknown]
  - Hypochondriasis [Unknown]
  - Hypercholesterolaemia [Unknown]
  - Pneumonia pseudomonal [Unknown]
  - Electrocardiogram repolarisation abnormality [Unknown]
  - Electrocardiogram T wave inversion [Unknown]
  - Dry eye [Unknown]
  - Retching [Unknown]
  - Lung infiltration [Unknown]
  - Antipsychotic drug level above therapeutic [Recovered/Resolved]
  - Fall [Unknown]
  - Left ventricular failure [Unknown]
  - Microalbuminuria [Unknown]
  - Atrophic vulvovaginitis [Unknown]
  - Constipation [Unknown]
  - Blood triglycerides increased [Not Recovered/Not Resolved]
  - Atelectasis [Unknown]
  - Electrocardiogram T wave amplitude decreased [Unknown]
  - Extrapyramidal disorder [Unknown]
  - Choking [Unknown]
  - Waist circumference increased [Unknown]
  - Dizziness [Unknown]
  - Swelling [Unknown]
  - Haematoma [Unknown]
  - Gastrooesophageal reflux disease [Unknown]
  - Glycosylated haemoglobin increased [Unknown]
  - Agitation [Unknown]
  - Eosinophil count decreased [Unknown]
  - Pleural fibrosis [Unknown]
  - Pericardial effusion [Unknown]
  - Head injury [Unknown]
  - Soft tissue injury [Unknown]
  - Psychotic disorder [Unknown]
  - Myocardial ischaemia [Unknown]
  - Dysphagia [Unknown]
  - Chronic obstructive pulmonary disease [Fatal]
  - Cough [Fatal]
  - Schizophrenia [Unknown]
  - Ankle fracture [Unknown]
  - Urinary tract infection [Unknown]
  - Ascites [Unknown]
  - Nasal discomfort [Unknown]
  - Central obesity [Unknown]
  - Sinus tachycardia [Unknown]
  - Orthostatic hypotension [Unknown]

NARRATIVE: CASE EVENT DATE: 2000
